FAERS Safety Report 23049580 (Version 1)
Quarter: 2023Q4

REPORT INFORMATION
  Report Type: Spontaneous
  Country: None (occurrence: KR)
  Receive Date: 20231010
  Receipt Date: 20231010
  Transmission Date: 20240110
  Serious: Yes (Hospitalization, Other)
  Sender: FDA-Public Use
  Company Number: KR-Hisun Pharmaceuticals-2146883

PATIENT
  Age: 55 Year
  Sex: Male

DRUGS (4)
  1. DAUNORUBICIN HYDROCHLORIDE [Suspect]
     Active Substance: DAUNORUBICIN HYDROCHLORIDE
     Indication: Acute leukaemia
  2. PREDNISOLONE [Suspect]
     Active Substance: PREDNISOLONE
  3. VINCRISTINE [Suspect]
     Active Substance: VINCRISTINE
  4. ASPARAGINASE [Suspect]
     Active Substance: ASPARAGINASE

REACTIONS (1)
  - Septic shock [Recovered/Resolved]
